FAERS Safety Report 4658749-1 (Version None)
Quarter: 2005Q2

REPORT INFORMATION
  Report Type: 
  Country: None (occurrence: None)
  Receive Date: 20050509
  Receipt Date: 20050425
  Transmission Date: 20051028
  Serious: Yes (Hospitalization, Other)
  Sender: FDA-Public Use
  Company Number: BR-2005-006580

PATIENT
  Age: 20 Year
  Sex: Female

DRUGS (1)
  1. BETAFERON [Suspect]
     Indication: MULTIPLE SCLEROSIS
     Dosage: 8 MIU, SUBCUTANEOUS
     Route: 058
     Dates: end: 20050201

REACTIONS (10)
  - ABDOMINAL PAIN UPPER [None]
  - ADRENOCORTICAL INSUFFICIENCY CHRONIC [None]
  - ALOPECIA [None]
  - BLOOD CREATINE ABNORMAL [None]
  - BLOOD SODIUM INCREASED [None]
  - HAEMATEMESIS [None]
  - MYELITIS TRANSVERSE [None]
  - SKIN DISCOLOURATION [None]
  - URINARY TRACT INFECTION [None]
  - WEIGHT DECREASED [None]
